FAERS Safety Report 9876296 (Version 1)
Quarter: 2014Q1

REPORT INFORMATION
  Report Type: Spontaneous
  Country: US (occurrence: None)
  Receive Date: 20140205
  Receipt Date: 20140205
  Transmission Date: 20141002
  Serious: Yes (Hospitalization, Disabling)
  Sender: FDA-Public Use
  Company Number: None

PATIENT
  Age: 61 Year
  Sex: Male
  Weight: 74.4 kg

DRUGS (12)
  1. ENOXAPARIN (ENOXAPARIN) [Suspect]
     Indication: THROMBOSIS PROPHYLAXIS
     Dosage: ENOXAPARIN  ONCE  SUBCUTANEOUS?ONE TIME
     Route: 058
  2. HEPARIN [Suspect]
     Indication: CATHETERISATION CARDIAC
     Dosage: 2000 UNITS  ONCE  MISC?ONE TIME
  3. WARFARIN [Concomitant]
  4. VASOPRESSIN [Concomitant]
  5. PROTONIX [Concomitant]
  6. MIDODRINE [Concomitant]
  7. METOPROLOL [Concomitant]
  8. METOCLOPRAMIDE [Concomitant]
  9. INSULIN [Concomitant]
  10. EPINEPHRINE [Concomitant]
  11. DEXMEDETOMIDINE [Concomitant]
  12. ASPIRIN [Concomitant]

REACTIONS (3)
  - Heparin-induced thrombocytopenia [None]
  - Necrosis [None]
  - Dry gangrene [None]
